FAERS Safety Report 18673956 (Version 1)
Quarter: 2020Q4

REPORT INFORMATION
  Report Type: Spontaneous
  Country: AU (occurrence: AU)
  Receive Date: 20201228
  Receipt Date: 20201228
  Transmission Date: 20210114
  Serious: Yes (Other)
  Sender: FDA-Public Use
  Company Number: AU-TAKEDA-2020TUS059946

PATIENT
  Age: 58 Year
  Sex: Female

DRUGS (19)
  1. REVESTIVE [Suspect]
     Active Substance: TEDUGLUTIDE
     Indication: SHORT-BOWEL SYNDROME
     Dosage: UNK
     Route: 065
     Dates: start: 20190711
  2. REVESTIVE [Suspect]
     Active Substance: TEDUGLUTIDE
     Indication: SHORT-BOWEL SYNDROME
     Dosage: UNK
     Route: 065
     Dates: start: 20190711
  3. ASPIRINE [Concomitant]
     Active Substance: ASPIRIN
     Indication: PRODUCT USED FOR UNKNOWN INDICATION
  4. GASTROLYTE [GLUCOSE;POTASSIUM CHLORIDE;SODIUM CHLORIDE;SODIUM CITRATE [Concomitant]
  5. HYDROXYUREA. [Concomitant]
     Active Substance: HYDROXYUREA
  6. AMINO ACIDS NOS [Concomitant]
     Active Substance: AMINO ACIDS, SOURCE UNSPECIFIED
  7. MINERALS NOS [Concomitant]
     Active Substance: MINERALS
  8. CODEINE [Concomitant]
     Active Substance: CODEINE
     Dosage: UNK UNK, TID
  9. VITAMINS NOS [Concomitant]
     Active Substance: VITAMINS
  10. CODEINE [Concomitant]
     Active Substance: CODEINE
     Dosage: UNK, BID
  11. REVESTIVE [Suspect]
     Active Substance: TEDUGLUTIDE
     Indication: SHORT-BOWEL SYNDROME
     Dosage: UNK
     Route: 065
     Dates: start: 20190711
  12. SODIUM BICARBONATE. [Concomitant]
     Active Substance: SODIUM BICARBONATE
  13. DENOSUMAB [Concomitant]
     Active Substance: DENOSUMAB
  14. ESOMEPRAZOLE. [Concomitant]
     Active Substance: ESOMEPRAZOLE MAGNESIUM
  15. CITRIC ACID [Concomitant]
     Active Substance: CITRIC ACID MONOHYDRATE
  16. REVESTIVE [Suspect]
     Active Substance: TEDUGLUTIDE
     Indication: SHORT-BOWEL SYNDROME
     Dosage: UNK
     Route: 065
     Dates: start: 20190711
  17. TPN [AMINO ACIDS NOS;CARBOHYDRATES NOS;MINERALS NOS;VITAMINS NOS] [Concomitant]
     Active Substance: AMINO ACIDS\CARBOHYDRATES\MINERALS\VITAMINS
  18. CARBOHYDRATES NOS [Concomitant]
  19. ORS [GLUCOSE;POTASSIUM CHLORIDE;SODIUM CHLORIDE;SODIUM CITRATE DIHYDRA [Concomitant]

REACTIONS (13)
  - Cholecystitis [Recovered/Resolved]
  - Pollakiuria [Unknown]
  - Stoma complication [Unknown]
  - Nausea [Unknown]
  - Gastrointestinal stoma complication [Unknown]
  - Abdominal discomfort [Unknown]
  - Abdominal pain [Unknown]
  - Weight decreased [Unknown]
  - Dehydration [Unknown]
  - Weight increased [Unknown]
  - Small intestinal stenosis [Recovered/Resolved]
  - Abdominal distension [Unknown]
  - Hyperphagia [Unknown]

NARRATIVE: CASE EVENT DATE: 20190715
